FAERS Safety Report 5140866-3 (Version None)
Quarter: 2006Q4

REPORT INFORMATION
  Report Type: 
  Country: None (occurrence: None)
  Receive Date: 20061025
  Receipt Date: 20061013
  Transmission Date: 20070319
  Serious: Yes (Disabling)
  Sender: FDA-Public Use
  Company Number: 2006126145

PATIENT
  Sex: Male

DRUGS (1)
  1. UNACID INJECTION (SULBACTAM, AMPICILLIN) [Suspect]
     Indication: NOSOCOMIAL INFECTION
     Dosage: 9 GRAM (3 GRAM, 3 IN 1 D) INTRAVENOUS
     Route: 042
     Dates: start: 20060927, end: 20061003

REACTIONS (3)
  - INFUSION RELATED REACTION [None]
  - VISUAL ACUITY REDUCED [None]
  - VISUAL DISTURBANCE [None]
